APPROVED DRUG PRODUCT: ACETAMINOPHEN
Active Ingredient: ACETAMINOPHEN
Strength: 650MG
Dosage Form/Route: TABLET, EXTENDED RELEASE;ORAL
Application: A075077 | Product #001
Applicant: L PERRIGO CO
Approved: Feb 25, 2000 | RLD: No | RS: No | Type: OTC